FAERS Safety Report 13241988 (Version 1)
Quarter: 2017Q1

REPORT INFORMATION
  Report Type: Spontaneous
  Country: US (occurrence: US)
  Receive Date: 20170216
  Receipt Date: 20170216
  Transmission Date: 20170428
  Serious: No
  Sender: FDA-Public Use
  Company Number: US-RELYPSA-RLY2017000005

PATIENT
  Age: 86 Year
  Sex: Female

DRUGS (10)
  1. OMEPRAZOLE. [Concomitant]
     Active Substance: OMEPRAZOLE
  2. AMLODIPINE [Concomitant]
     Active Substance: AMLODIPINE BESYLATE
  3. ASPIRIN                            /00002701/ [Concomitant]
     Active Substance: ASPIRIN
  4. VELTASSA [Suspect]
     Active Substance: PATIROMER
     Indication: HYPERKALAEMIA
     Dosage: 8.4 G, QD
     Route: 048
     Dates: start: 201610
  5. RENVELA [Concomitant]
     Active Substance: SEVELAMER CARBONATE
  6. FLAVIX [Concomitant]
  7. LEVOTHYROXIN [Concomitant]
     Active Substance: LEVOTHYROXINE
  8. HUMALOG [Concomitant]
     Active Substance: INSULIN LISPRO
  9. CLONIDINE. [Concomitant]
     Active Substance: CLONIDINE
  10. METOPROLOL. [Concomitant]
     Active Substance: METOPROLOL

REACTIONS (1)
  - Constipation [Unknown]

NARRATIVE: CASE EVENT DATE: 201612
